FAERS Safety Report 18735275 (Version 1)
Quarter: 2021Q1

REPORT INFORMATION
  Report Type: Spontaneous
  Country: US (occurrence: US)
  Receive Date: 20210113
  Receipt Date: 20210113
  Transmission Date: 20210419
  Serious: No
  Sender: FDA-Public Use
  Company Number: US-JUBILANT PHARMA LTD-2020US000677

PATIENT

DRUGS (2)
  1. DIETHYLENETRIAMINEPENTAACETIC ACID [Concomitant]
     Active Substance: PENTETIC ACID
     Indication: VENTILATION/PERFUSION SCAN
     Dosage: UNK
     Dates: start: 20200812, end: 20200812
  2. DRAXIMAGE MAA [Suspect]
     Active Substance: TECHNETIUM TC-99M ALBUMIN AGGREGATED
     Indication: PULMONARY IMAGING PROCEDURE
     Dosage: 6.166 MCI, SINGLE DOSE
     Route: 042
     Dates: start: 20200812, end: 20200812

REACTIONS (1)
  - Drug ineffective [Unknown]

NARRATIVE: CASE EVENT DATE: 20200812
